FAERS Safety Report 7990380-2 (Version None)
Quarter: 2011Q4

REPORT INFORMATION
  Report Type: 
  Country: None (occurrence: None)
  Receive Date: 20111219
  Receipt Date: 20101110
  Transmission Date: 20120403
  Serious: No
  Sender: FDA-Public Use
  Company Number: US-ASTRAZENECA-2010SE39729

PATIENT
  Age: 17006 Day
  Sex: Female

DRUGS (1)
  1. CRESTOR [Suspect]
     Indication: HYPERLIPIDAEMIA
     Route: 048

REACTIONS (3)
  - NASOPHARYNGITIS [None]
  - SINUS DISORDER [None]
  - UPPER RESPIRATORY TRACT INFECTION [None]
